FAERS Safety Report 8840860 (Version 2)
Quarter: 2012Q4

REPORT INFORMATION
  Report Type: 
  Country: US (occurrence: US)
  Receive Date: 20121015
  Receipt Date: 20121203
  Transmission Date: 20130627
  Serious: Yes (Other)
  Sender: FDA-Public Use
  Company Number: PHEH2012US014227

PATIENT
  Age: 36 Year
  Sex: Female
  Weight: 118.82 kg

DRUGS (4)
  1. GILENYA [Suspect]
     Indication: MULTIPLE SCLEROSIS
     Dosage: 0.5 mg, QD
     Route: 048
     Dates: start: 20110715
  2. TOPAMAX [Concomitant]
     Dosage: 100 mg, QD
     Route: 048
  3. CATAPRES [Concomitant]
     Dosage: 0.2 mg, daily
  4. SOLU-MEDROL [Concomitant]
     Dosage: 1 g, UNK
     Route: 042
     Dates: start: 20120317

REACTIONS (25)
  - Cerebellar infarction [Unknown]
  - Aggression [Unknown]
  - Depression [Unknown]
  - Irritability [Recovered/Resolved]
  - Blood pressure increased [Unknown]
  - Multiple sclerosis relapse [Recovered/Resolved]
  - Muscular weakness [Recovering/Resolving]
  - Fatigue [Unknown]
  - Hypoaesthesia [Unknown]
  - Paraesthesia [Unknown]
  - Vision blurred [Unknown]
  - Asthenia [Unknown]
  - Anaemia [Unknown]
  - Constipation [Unknown]
  - Muscle spasms [Unknown]
  - Myalgia [Unknown]
  - Dry mouth [Unknown]
  - Memory impairment [Unknown]
  - Diarrhoea [Unknown]
  - Cough [Unknown]
  - Headache [Unknown]
  - Nuclear magnetic resonance imaging abnormal [Unknown]
  - Pyrexia [Unknown]
  - Chills [Unknown]
  - Back pain [Unknown]
